FAERS Safety Report 16940008 (Version 3)
Quarter: 2019Q4

REPORT INFORMATION
  Report Type: Report from Study
  Country: US (occurrence: US)
  Receive Date: 20191021
  Receipt Date: 20191224
  Transmission Date: 20200122
  Serious: Yes (Other)
  Sender: FDA-Public Use
  Company Number: NVSC2019US007533

PATIENT
  Age: 8 Year
  Sex: Male

DRUGS (3)
  1. KYMRIAH [Suspect]
     Active Substance: TISAGENLECLEUCEL
     Indication: DIFFUSE LARGE B-CELL LYMPHOMA
     Dosage: UNK UNK, ONCE/SINGLE
     Route: 041
     Dates: start: 2019
  2. FLUDARABINE [Concomitant]
     Active Substance: FLUDARABINE PHOSPHATE
     Indication: CHEMOTHERAPY
     Route: 065
  3. CYCLOPHOSPHAMIDE. [Concomitant]
     Active Substance: CYCLOPHOSPHAMIDE
     Indication: CHEMOTHERAPY
     Route: 065

REACTIONS (22)
  - Neutrophil count decreased [Unknown]
  - Aphasia [Recovered/Resolved]
  - White blood cell count increased [Unknown]
  - Neutrophil count increased [Unknown]
  - Adenovirus infection [Unknown]
  - Pyrexia [Recovered/Resolved]
  - Encephalopathy [Recovered/Resolved]
  - Tremor [Recovered/Resolved]
  - Haematocrit decreased [Unknown]
  - Depressed level of consciousness [Recovered/Resolved]
  - White blood cell count decreased [Unknown]
  - Epstein-Barr virus infection [Unknown]
  - Cytokine release syndrome [Recovered/Resolved]
  - Neurotoxicity [Recovered/Resolved]
  - Lymphocyte count decreased [Unknown]
  - Haemoglobin decreased [Unknown]
  - Escherichia bacteraemia [Unknown]
  - Seizure [Unknown]
  - Hypogammaglobulinaemia [Unknown]
  - Platelet count decreased [Unknown]
  - Clostridium difficile infection [Unknown]
  - Cryptosporidiosis infection [Unknown]
